FAERS Safety Report 11554581 (Version 1)
Quarter: 2015Q3

REPORT INFORMATION
  Report Type: Spontaneous
  Country: CA (occurrence: CA)
  Receive Date: 20150925
  Receipt Date: 20150925
  Transmission Date: 20151125
  Serious: Yes (Hospitalization)
  Sender: FDA-Public Use
  Company Number: CA-TEVA-596294USA

PATIENT
  Age: 6 Month
  Sex: Female

DRUGS (2)
  1. BUPROPION. [Suspect]
     Active Substance: BUPROPION
     Indication: EXPOSURE DURING BREAST FEEDING
     Route: 048
  2. ESCITALOPRAM [Concomitant]
     Active Substance: ESCITALOPRAM OXALATE
     Indication: EXPOSURE DURING BREAST FEEDING
     Route: 048

REACTIONS (2)
  - Seizure [Unknown]
  - Exposure during breast feeding [Unknown]
